FAERS Safety Report 10200480 (Version 1)
Quarter: 2014Q2

REPORT INFORMATION
  Report Type: Other
  Country: US (occurrence: US)
  Receive Date: 20140528
  Receipt Date: 20140528
  Transmission Date: 20141212
  Serious: Yes (Life-Threatening)
  Sender: FDA-Public Use
  Company Number: US-LUPIN PHARMACEUTICALS INC.-2014-01004

PATIENT
  Sex: Female
  Weight: 69.01 kg

DRUGS (2)
  1. AMLODIPINE BESYLATE TABLETS 5 MG (AMLODIPINE BESILATE) ( 5 MILLIGRAM, TABLETS) [Suspect]
     Indication: HYPERTENSION
     Dates: end: 2014
  2. FLOVENT [Concomitant]
     Indication: ASTHMA
     Route: 055

REACTIONS (1)
  - Breast cancer [Recovered/Resolved]
